FAERS Safety Report 15052235 (Version 1)
Quarter: 2018Q2

REPORT INFORMATION
  Report Type: Spontaneous
  Country: US (occurrence: US)
  Receive Date: 20180622
  Receipt Date: 20180622
  Transmission Date: 20180711
  Serious: No
  Sender: FDA-Public Use
  Company Number: US-DENDREON PHARMACEUTICALS LLC-2017DEN000250

PATIENT
  Age: 59 Year
  Sex: Male

DRUGS (2)
  1. PROVENGE [Suspect]
     Active Substance: SIPULEUCEL-T
     Indication: PRODUCT USED FOR UNKNOWN INDICATION
     Route: 065
  2. XTANDI [Suspect]
     Active Substance: ENZALUTAMIDE
     Indication: PRODUCT USED FOR UNKNOWN INDICATION
     Route: 048
     Dates: start: 20160615

REACTIONS (4)
  - Chest pain [Unknown]
  - Pain in extremity [Unknown]
  - Somnolence [Unknown]
  - Drug interaction [Unknown]

NARRATIVE: CASE EVENT DATE: 20161209
